FAERS Safety Report 8538573-X (Version None)
Quarter: 2012Q3

REPORT INFORMATION
  Report Type: 
  Country: None (occurrence: None)
  Receive Date: 20120718
  Receipt Date: 20120718
  Transmission Date: 20120928
  Serious: Yes (Disabling)
  Sender: FDA-Public Use
  Company Number: None

PATIENT
  Sex: Female
  Weight: 97.0698 kg

DRUGS (1)
  1. METHOTREXATE [Suspect]
     Indication: RHEUMATOID ARTHRITIS
     Dosage: 1CC EVERY WK WEEKLY I.M. SUBQ DECREASED TO 0.3 EVERY WK WEEKLY
     Route: 058
     Dates: start: 20091101, end: 20120401

REACTIONS (1)
  - INTERSTITIAL LUNG DISEASE [None]
